FAERS Safety Report 15785862 (Version 4)
Quarter: 2019Q3

REPORT INFORMATION
  Report Type: Report from Study
  Country: DE (occurrence: DE)
  Receive Date: 20190103
  Receipt Date: 20190920
  Transmission Date: 20191004
  Serious: Yes (Hospitalization, Other)
  Sender: FDA-Public Use
  Company Number: DE-PFIZER INC-2018533391

PATIENT
  Sex: Male
  Weight: 78 kg

DRUGS (13)
  1. PREDNISOLONE. [Concomitant]
     Active Substance: PREDNISOLONE
     Indication: VIRAL CARDIOMYOPATHY
     Dosage: 100 MG, 1X/DAY
     Route: 048
     Dates: start: 20180228
  2. MINOCYCLINE [Concomitant]
     Active Substance: MINOCYCLINE HYDROCHLORIDE
     Indication: IMMUNE THROMBOCYTOPENIC PURPURA
     Dosage: 50 MG, FOR 3 DAYS
     Route: 048
     Dates: start: 20181106, end: 20181204
  3. EPLERENONE. [Concomitant]
     Active Substance: EPLERENONE
     Indication: VIRAL CARDIOMYOPATHY
     Dosage: 25 MG, 1X/DAY
     Route: 048
     Dates: start: 201801
  4. REVOLADE [Suspect]
     Active Substance: ELTROMBOPAG
     Dosage: 75 MG, 1X/DAY
     Route: 048
     Dates: start: 20180424, end: 20180515
  5. IDEOS [Concomitant]
     Active Substance: CALCIUM CARBONATE\CHOLECALCIFEROL
     Indication: VIRAL CARDIOMYOPATHY
     Dosage: 1 DF, 2X/DAY
     Route: 048
  6. BISOPROLOL [Concomitant]
     Active Substance: BISOPROLOL
     Indication: VIRAL CARDIOMYOPATHY
     Dosage: 5 MG, 2X/DAY
     Route: 048
     Dates: start: 201801
  7. PANTOPRAZOLE [Suspect]
     Active Substance: PANTOPRAZOLE
     Indication: GASTROOESOPHAGEAL REFLUX DISEASE
     Dosage: 40 MG, 1X/DAY
     Route: 048
     Dates: start: 20180625
  8. REVOLADE [Suspect]
     Active Substance: ELTROMBOPAG
     Indication: IMMUNE THROMBOCYTOPENIC PURPURA
     Dosage: 50 MG, 1X/DAY
     Route: 048
     Dates: start: 20180328, end: 20180423
  9. ENTRESTO [Concomitant]
     Active Substance: SACUBITRIL\VALSARTAN
     Indication: VIRAL CARDIOMYOPATHY
     Dosage: 2 DF, BID (2-0-2)
     Route: 048
     Dates: start: 201801
  10. ASPIRIN. [Concomitant]
     Active Substance: ASPIRIN
     Indication: VIRAL CARDIOMYOPATHY
     Dosage: 100 MG, 1X/DAY
     Route: 048
     Dates: start: 201801
  11. UNACID (AMPICILLIN SODIUM\SULBACTAM SODIUM) [Suspect]
     Active Substance: AMPICILLIN SODIUM\SULBACTAM SODIUM
     Indication: BLOOD CREATININE INCREASED
     Dosage: UNK
     Dates: start: 20180531, end: 20180615
  12. REVOLADE [Suspect]
     Active Substance: ELTROMBOPAG
     Dosage: 75 MG, 1X/DAY
     Route: 048
     Dates: start: 20180625
  13. TORSEMIDE. [Concomitant]
     Active Substance: TORSEMIDE
     Indication: VIRAL CARDIOMYOPATHY
     Dosage: 10 MG, 1X/DAY
     Route: 048
     Dates: start: 201801

REACTIONS (8)
  - Product use in unapproved indication [Unknown]
  - Acne [Unknown]
  - Thrombocytopenia [Recovered/Resolved]
  - Infection [Unknown]
  - Nausea [Recovering/Resolving]
  - Fatigue [Unknown]
  - Blood creatinine increased [Recovering/Resolving]
  - Proteinuria [Unknown]

NARRATIVE: CASE EVENT DATE: 20180424
